FAERS Safety Report 4312637-9 (Version None)
Quarter: 2004Q1

REPORT INFORMATION
  Report Type: 
  Country: None (occurrence: None)
  Receive Date: 20040305
  Receipt Date: 20030910
  Transmission Date: 20041129
  Serious: Yes (Hospitalization)
  Sender: FDA-Public Use
  Company Number: WAES 0309USA01194

PATIENT
  Age: 55 Year
  Sex: Female

DRUGS (4)
  1. BUSPAR [Concomitant]
  2. CLARITIN [Concomitant]
  3. VIOXX [Suspect]
     Route: 048
     Dates: start: 19990101, end: 20001023
  4. ZOLOFT [Concomitant]

REACTIONS (14)
  - ANAEMIA [None]
  - BLOOD PRESSURE INCREASED [None]
  - CORONARY ARTERY ATHEROSCLEROSIS [None]
  - DEEP VEIN THROMBOSIS [None]
  - HAEMATOMA [None]
  - HAEMOPTYSIS [None]
  - HAEMOTHORAX [None]
  - HEART RATE INCREASED [None]
  - PLATELET COUNT INCREASED [None]
  - PLEURAL EFFUSION [None]
  - PULMONARY ARTERY THROMBOSIS [None]
  - PULMONARY INFARCTION [None]
  - SARCOMA [None]
  - WEIGHT DECREASED [None]
